APPROVED DRUG PRODUCT: PERPHENAZINE
Active Ingredient: PERPHENAZINE
Strength: 4MG
Dosage Form/Route: TABLET;ORAL
Application: A212545 | Product #002 | TE Code: AB
Applicant: MACLEODS PHARMACEUTICALS LTD
Approved: May 6, 2024 | RLD: No | RS: No | Type: RX